FAERS Safety Report 8792893 (Version 2)
Quarter: 2015Q3

REPORT INFORMATION
  Report Type: Report from Study
  Country: US (occurrence: US)
  Receive Date: 20120918
  Receipt Date: 20150814
  Transmission Date: 20151125
  Serious: Yes (Death, Hospitalization)
  Sender: FDA-Public Use
  Company Number: US-ROCHE-1098267

PATIENT
  Sex: Female

DRUGS (12)
  1. ZOMETA [Concomitant]
     Active Substance: ZOLEDRONIC ACID
     Route: 042
  2. ALOXI [Concomitant]
     Active Substance: PALONOSETRON HYDROCHLORIDE
     Route: 042
  3. PACLITAXEL. [Concomitant]
     Active Substance: PACLITAXEL
     Route: 042
  4. CARBOPLATINUM [Concomitant]
     Active Substance: CARBOPLATIN
  5. NEULASTA [Suspect]
     Active Substance: PEGFILGRASTIM
     Indication: PRODUCT USED FOR UNKNOWN INDICATION
     Dosage: 05/MAY/2009
     Route: 058
  6. LOVENOX [Concomitant]
     Active Substance: ENOXAPARIN SODIUM
     Route: 058
  7. BENADRYL [Concomitant]
     Active Substance: DIPHENHYDRAMINE HYDROCHLORIDE
     Route: 042
  8. AVASTIN [Suspect]
     Active Substance: BEVACIZUMAB
     Indication: LUNG NEOPLASM MALIGNANT
     Route: 042
     Dates: start: 20090129
  9. AVASTIN [Suspect]
     Active Substance: BEVACIZUMAB
     Route: 042
  10. PACLITAXEL. [Concomitant]
     Active Substance: PACLITAXEL
     Route: 042
  11. CIMETIDINE HCL [Concomitant]
     Route: 042
  12. ZOMETA [Concomitant]
     Active Substance: ZOLEDRONIC ACID
     Route: 042

REACTIONS (28)
  - Chills [Unknown]
  - Thrombocytopenia [Recovering/Resolving]
  - Venous thrombosis limb [Unknown]
  - Asthenia [Unknown]
  - Fatigue [Unknown]
  - Diarrhoea [Unknown]
  - Death [Fatal]
  - Abdominal distension [Unknown]
  - Insomnia [Unknown]
  - Gastrointestinal haemorrhage [Unknown]
  - Oedema mucosal [Unknown]
  - Pleural effusion [Unknown]
  - Pyrexia [Recovering/Resolving]
  - Haemorrhoids [Unknown]
  - Depression [Unknown]
  - Pneumonia [Unknown]
  - Blood bilirubin increased [Unknown]
  - Urinary tract infection [Unknown]
  - Decreased appetite [Unknown]
  - Colitis [Unknown]
  - Leukocytosis [Unknown]
  - Peripheral swelling [Unknown]
  - Tachycardia [Unknown]
  - Pelvic fluid collection [Unknown]
  - Muscle spasms [Recovered/Resolved]
  - Hyponatraemia [Unknown]
  - Abdominal pain [Unknown]
  - Rib fracture [Unknown]
